FAERS Safety Report 9754327 (Version 1)
Quarter: 2013Q4

REPORT INFORMATION
  Report Type: Spontaneous
  Country: MY (occurrence: MY)
  Receive Date: 20131213
  Receipt Date: 20131213
  Transmission Date: 20140711
  Serious: Yes (Death, Other)
  Sender: FDA-Public Use
  Company Number: PHHY2013MY143358

PATIENT
  Age: 55 Year
  Sex: Male

DRUGS (2)
  1. DOXORUBICIN [Suspect]
     Dosage: 150 MG, UNK
  2. IOPROMIDE [Concomitant]

REACTIONS (14)
  - Death [Fatal]
  - Tumour lysis syndrome [Unknown]
  - Metabolic acidosis [Unknown]
  - General physical health deterioration [Unknown]
  - Arrhythmia [Unknown]
  - Abdominal pain upper [Unknown]
  - Abdominal discomfort [Unknown]
  - Chromaturia [Unknown]
  - Haematuria [Unknown]
  - Renal impairment [Unknown]
  - Anuria [Unknown]
  - Blood electrolytes abnormal [Unknown]
  - Somnolence [Unknown]
  - Nausea [Unknown]
